FAERS Safety Report 19684171 (Version 1)
Quarter: 2021Q3

REPORT INFORMATION
  Report Type: Spontaneous
  Country: FR (occurrence: FR)
  Receive Date: 20210811
  Receipt Date: 20210811
  Transmission Date: 20211014
  Serious: Yes (Other)
  Sender: FDA-Public Use
  Company Number: FR-APOTEX-2021AP031857

PATIENT
  Age: 34 Year
  Sex: Female

DRUGS (1)
  1. DEROXAT [Suspect]
     Active Substance: PAROXETINE HYDROCHLORIDE
     Indication: PRODUCT USED FOR UNKNOWN INDICATION
     Dosage: 10 MILLIGRAM, QD
     Route: 048
     Dates: start: 20210727

REACTIONS (5)
  - Malaise [Unknown]
  - Hypothermia [Unknown]
  - Dyskinesia [Unknown]
  - Product dose omission issue [Unknown]
  - Tremor [Unknown]

NARRATIVE: CASE EVENT DATE: 202107
